FAERS Safety Report 11996386 (Version 3)
Quarter: 2016Q2

REPORT INFORMATION
  Report Type: Report from Study
  Country: US (occurrence: US)
  Receive Date: 20160203
  Receipt Date: 20160506
  Transmission Date: 20160815
  Serious: No
  Sender: FDA-Public Use
  Company Number: US-AMGEN-USASL2016009874

PATIENT
  Age: 22 Year
  Sex: Male

DRUGS (1)
  1. ENBREL [Suspect]
     Active Substance: ETANERCEPT
     Indication: PSORIATIC ARTHROPATHY
     Dosage: 50 MG, QWK
     Route: 065
     Dates: start: 20160125

REACTIONS (14)
  - Drug ineffective [Recovering/Resolving]
  - Screaming [Unknown]
  - Erythema [Not Recovered/Not Resolved]
  - Injection site warmth [Recovered/Resolved]
  - Arthralgia [Recovering/Resolving]
  - Injection site discomfort [Unknown]
  - Injection site pain [Unknown]
  - Injection site erythema [Recovered/Resolved]
  - Psoriasis [Recovering/Resolving]
  - Gait disturbance [Recovering/Resolving]
  - Blister [Unknown]
  - Pruritus [Recovered/Resolved]
  - Skin disorder [Unknown]
  - Grimacing [Unknown]

NARRATIVE: CASE EVENT DATE: 2016
